FAERS Safety Report 13791745 (Version 3)
Quarter: 2019Q2

REPORT INFORMATION
  Report Type: Report from Study
  Country: US (occurrence: US)
  Receive Date: 20170725
  Receipt Date: 20190509
  Transmission Date: 20190711
  Serious: Yes (Hospitalization, Congenital Anomaly)
  Sender: FDA-Public Use
  Company Number: US-ACTELION-A-US2017-156941

PATIENT
  Age: 52 Year
  Sex: Male

DRUGS (5)
  1. TADALAFIL. [Concomitant]
     Active Substance: TADALAFIL
     Dosage: UNK, QD
     Dates: end: 20190324
  2. SILDENAFIL. [Concomitant]
     Active Substance: SILDENAFIL
  3. TACROLIMUS. [Concomitant]
     Active Substance: TACROLIMUS
  4. MYCOPHENOLATE [Concomitant]
     Active Substance: MYCOPHENOLIC ACID
  5. OPSUMIT [Suspect]
     Active Substance: MACITENTAN
     Indication: PULMONARY ARTERIAL HYPERTENSION
     Dosage: UNK
     Route: 048
     Dates: start: 20170415, end: 20190324

REACTIONS (5)
  - Pleural effusion [Recovered/Resolved]
  - Oedema [Recovered/Resolved]
  - Fluid retention [Recovered/Resolved]
  - Liver transplant [Recovering/Resolving]
  - Blood bilirubin increased [Unknown]

NARRATIVE: CASE EVENT DATE: 20170619
